FAERS Safety Report 7120635-5 (Version None)
Quarter: 2011Q1

REPORT INFORMATION
  Report Type: 
  Country: None (occurrence: None)
  Receive Date: 20101122
  Receipt Date: 20101122
  Transmission Date: 20110831
  Serious: No
  Sender: FDA-Public Use
  Company Number: None

PATIENT
  Sex: Female
  Weight: 74.3899 kg

DRUGS (3)
  1. YAZ [Suspect]
  2. BEYAZ [Suspect]
     Indication: CONTRACEPTION
     Dosage: 3 MG/0.02MG/0.45 MG MONTHLY 1 PO QD
     Route: 048
     Dates: start: 20070901
  3. BEYAZ [Suspect]
     Indication: DYSMENORRHOEA
     Dosage: 3 MG/0.02MG/0.45 MG MONTHLY 1 PO QD
     Route: 048
     Dates: start: 20070901

REACTIONS (2)
  - HEADACHE [None]
  - PREMENSTRUAL SYNDROME [None]
